FAERS Safety Report 6380311-3 (Version None)
Quarter: 2009Q3

REPORT INFORMATION
  Report Type: 
  Country: None (occurrence: None)
  Receive Date: 20090929
  Receipt Date: 20090924
  Transmission Date: 20100115
  Serious: Yes (Hospitalization)
  Sender: FDA-Public Use
  Company Number: FR-ROCHE-658581

PATIENT
  Sex: Female

DRUGS (5)
  1. CYMEVAN [Suspect]
     Route: 048
     Dates: start: 20081212, end: 20090108
  2. SPRYCEL [Interacting]
     Route: 048
     Dates: start: 20070101, end: 20090101
  3. SPRYCEL [Interacting]
     Dosage: RE-STARTED AT REDUCED DOSAGE
     Route: 048
     Dates: start: 20090203
  4. ARANESP [Concomitant]
     Route: 058
     Dates: start: 20090115
  5. LOXEN [Concomitant]
     Route: 048
     Dates: start: 20090131

REACTIONS (2)
  - DRUG INTERACTION [None]
  - RENAL FAILURE [None]
